FAERS Safety Report 6263256-9 (Version None)
Quarter: 2009Q3

REPORT INFORMATION
  Report Type: 
  Country: None (occurrence: None)
  Receive Date: 20090708
  Receipt Date: 20090708
  Transmission Date: 20100115
  Serious: No
  Sender: FDA-Public Use
  Company Number: None

PATIENT
  Age: 33 Year
  Sex: Female

DRUGS (1)
  1. LAC-HYDRIN [Suspect]
     Dosage: BID TOP
     Route: 061

REACTIONS (3)
  - PRODUCT ODOUR ABNORMAL [None]
  - PRODUCT SUBSTITUTION ISSUE [None]
  - SKIN BURNING SENSATION [None]
